FAERS Safety Report 7953697-3 (Version None)
Quarter: 2011Q4

REPORT INFORMATION
  Report Type: 
  Country: None (occurrence: None)
  Receive Date: 20111202
  Receipt Date: 20101115
  Transmission Date: 20120403
  Serious: No
  Sender: FDA-Public Use
  Company Number: US-BAYER-201037070NA

PATIENT
  Sex: Female

DRUGS (2)
  1. CLIMARA [Suspect]
     Dosage: UNK
     Dates: start: 20100701
  2. CLIMARA [Suspect]
     Dosage: UNK
     Dates: start: 20100201

REACTIONS (2)
  - RASH [None]
  - SKIN IRRITATION [None]
